FAERS Safety Report 18790490 (Version 1)
Quarter: 2021Q1

REPORT INFORMATION
  Report Type: Spontaneous
  Country: US (occurrence: US)
  Receive Date: 20210126
  Receipt Date: 20210126
  Transmission Date: 20210419
  Serious: Yes (Other)
  Sender: FDA-Public Use
  Company Number: US-BRISTOL-MYERS SQUIBB COMPANY-BMS-2021-005789

PATIENT
  Sex: Male

DRUGS (1)
  1. SPRYCEL [Suspect]
     Active Substance: DASATINIB
     Indication: THROMBOCYTOPENIA
     Dosage: 70 MILLIGRAM DAILY
     Route: 048
     Dates: start: 201601

REACTIONS (2)
  - Pulmonary oedema [Unknown]
  - Intentional product use issue [Unknown]
